FAERS Safety Report 5907661-6 (Version None)
Quarter: 2008Q4

REPORT INFORMATION
  Report Type: 
  Country: None (occurrence: None)
  Receive Date: 20081002
  Receipt Date: 20081002
  Transmission Date: 20090506
  Serious: No
  Sender: FDA-Public Use
  Company Number: None

PATIENT
  Age: 50 Year
  Sex: Male
  Weight: 88.2 kg

DRUGS (1)
  1. AMMONIUM CHLORIDE [Suspect]
     Dosage: QS ONCE TOP
     Route: 061
     Dates: start: 20080928, end: 20080928

REACTIONS (2)
  - COUGH [None]
  - WHEEZING [None]
